FAERS Safety Report 9337020 (Version 1)
Quarter: 2013Q2

REPORT INFORMATION
  Report Type: Spontaneous
  Country: US (occurrence: US)
  Receive Date: 20130607
  Receipt Date: 20130607
  Transmission Date: 20140414
  Serious: Yes (Hospitalization)
  Sender: FDA-Public Use
  Company Number: US-NOVOPROD-379066

PATIENT
  Sex: Male

DRUGS (3)
  1. NOVOLIN 70/30 [Suspect]
     Indication: TYPE 2 DIABETES MELLITUS
     Dosage: 35 U SINGLE DOSE IN AM
     Route: 058
     Dates: start: 20130515, end: 20130515
  2. NOVOLIN 70/30 [Suspect]
     Dosage: 20 U SINGLE DOSE IN PM
     Route: 058
     Dates: start: 20130526, end: 20130526
  3. CLONIDINE [Concomitant]
     Indication: HYPERTENSION
     Dosage: UNK
     Route: 062

REACTIONS (2)
  - Cerebrovascular accident [Recovered/Resolved]
  - Hemiparesis [Not Recovered/Not Resolved]
